FAERS Safety Report 4764871-1 (Version None)
Quarter: 2005Q3

REPORT INFORMATION
  Report Type: 
  Country: None (occurrence: None)
  Receive Date: 20050909
  Receipt Date: 20050830
  Transmission Date: 20060218
  Serious: Yes (Hospitalization)
  Sender: FDA-Public Use
  Company Number: FR-JNJFOC-20050504670

PATIENT
  Sex: Female

DRUGS (6)
  1. REMINYL [Suspect]
     Route: 048
  2. ZOCOR [Concomitant]
  3. TANAKAN [Concomitant]
     Dosage: 1 DOSE = 1 TABLET
  4. ENDOTELON [Concomitant]
  5. ENDOTELON [Concomitant]
     Dosage: 1 X 150MG TABLET DAILY
  6. KARDEGIC [Concomitant]

REACTIONS (2)
  - GOITRE [None]
  - WEIGHT DECREASED [None]
